FAERS Safety Report 5664954-8 (Version None)
Quarter: 2008Q1

REPORT INFORMATION
  Report Type: 
  Country: None (occurrence: None)
  Receive Date: 20080314
  Receipt Date: 20080303
  Transmission Date: 20080703
  Serious: Yes (Death)
  Sender: FDA-Public Use
  Company Number: US-PFIZER INC-2008014134

PATIENT
  Sex: Male

DRUGS (4)
  1. XANAX [Suspect]
  2. OXYMORPHONE HCL [Suspect]
     Route: 048
  3. MARIJUANA [Suspect]
  4. ALCOHOL [Suspect]

REACTIONS (4)
  - DRUG ABUSE [None]
  - INTENTIONAL DRUG MISUSE [None]
  - MULTIPLE DRUG OVERDOSE [None]
  - OVERDOSE [None]
